FAERS Safety Report 8452264-5 (Version None)
Quarter: 2012Q2

REPORT INFORMATION
  Report Type: 
  Country: None (occurrence: None)
  Receive Date: 20120620
  Receipt Date: 20120404
  Transmission Date: 20120825
  Serious: No
  Sender: FDA-Public Use
  Company Number: US-VERTEX PHARMACEUTICALS INC.-AE-2012-004866

PATIENT
  Sex: Female
  Weight: 68.1 kg

DRUGS (8)
  1. INCIVEK [Suspect]
     Indication: HEPATITIS C
     Route: 048
     Dates: start: 20120323
  2. FUROSEMIDE [Concomitant]
     Route: 048
  3. OMEPRISOLE [Concomitant]
     Route: 048
  4. RIBASPHERE [Concomitant]
     Indication: HEPATITIS C
     Route: 048
     Dates: start: 20120323
  5. HUMILIN L INSULIN [Concomitant]
  6. PEGASYS [Concomitant]
     Indication: HEPATITIS C
     Route: 058
     Dates: start: 20120323
  7. SPIRONOLACTONE [Concomitant]
     Route: 048
  8. HUMALOG [Concomitant]

REACTIONS (4)
  - ANORECTAL DISCOMFORT [None]
  - INJECTION SITE ERYTHEMA [None]
  - PROCTITIS [None]
  - BLOOD GLUCOSE INCREASED [None]
